FAERS Safety Report 6738671-7 (Version None)
Quarter: 2010Q2

REPORT INFORMATION
  Report Type: 
  Country: None (occurrence: None)
  Receive Date: 20100524
  Receipt Date: 20100513
  Transmission Date: 20101027
  Serious: Yes (Other)
  Sender: FDA-Public Use
  Company Number: US-AMGEN-QUU409686

PATIENT
  Sex: Female

DRUGS (1)
  1. ENBREL [Suspect]
     Indication: PSORIASIS
     Route: 058
     Dates: start: 20070201

REACTIONS (5)
  - ASTHMA [None]
  - CHOLELITHIASIS [None]
  - PAIN [None]
  - PSORIASIS [None]
  - RESPIRATORY TRACT INFECTION [None]
